FAERS Safety Report 14797895 (Version 1)
Quarter: 2018Q2

REPORT INFORMATION
  Report Type: Spontaneous
  Country: FR (occurrence: FR)
  Receive Date: 20180424
  Receipt Date: 20180424
  Transmission Date: 20180711
  Serious: Yes (Hospitalization)
  Sender: FDA-Public Use
  Company Number: FR-ROCHE-2106165

PATIENT
  Age: 68 Year
  Sex: Female
  Weight: 50 kg

DRUGS (7)
  1. GAZYVARO [Suspect]
     Active Substance: OBINUTUZUMAB
     Indication: LYMPHOMA
     Route: 042
     Dates: start: 20171122
  2. TIRABRUTINIB [Suspect]
     Active Substance: TIRABRUTINIB
     Indication: LYMPHOMA
     Route: 065
     Dates: start: 20171122, end: 20171222
  3. BACTRIM [Concomitant]
     Active Substance: SULFAMETHOXAZOLE\TRIMETHOPRIM
     Route: 048
     Dates: start: 20171124
  4. ZYDELIG [Suspect]
     Active Substance: IDELALISIB
     Indication: LYMPHOMA
     Route: 048
     Dates: start: 20171123, end: 20171222
  5. LEVOTHYROX [Concomitant]
     Active Substance: LEVOTHYROXINE
     Route: 048
  6. ZELITREX [Concomitant]
     Active Substance: VALACYCLOVIR HYDROCHLORIDE
     Route: 048
     Dates: start: 20171124
  7. OCTAGAM IMMUNE GLOBULIN (HUMAN) [Concomitant]
     Active Substance: HUMAN IMMUNOGLOBULIN G
     Route: 042

REACTIONS (5)
  - Psychomotor skills impaired [Recovering/Resolving]
  - Vision blurred [Recovering/Resolving]
  - Disturbance in attention [Recovered/Resolved]
  - Coordination abnormal [Recovering/Resolving]
  - Dyspraxia [Recovered/Resolved]

NARRATIVE: CASE EVENT DATE: 201712
